FAERS Safety Report 5857942-X (Version None)
Quarter: 2008Q3

REPORT INFORMATION
  Report Type: 
  Country: None (occurrence: None)
  Receive Date: 20080825
  Receipt Date: 20080825
  Transmission Date: 20090109
  Serious: Yes (Other)
  Sender: FDA-Public Use
  Company Number: None

PATIENT
  Sex: Male
  Weight: 39.9 kg

DRUGS (1)
  1. RISPERIDONE [Suspect]
     Indication: AGGRESSION
     Dosage: 1 MG 1/2 AM 1/2 PM 1HS
     Dates: start: 20080817, end: 20080822

REACTIONS (4)
  - ABNORMAL BEHAVIOUR [None]
  - AGGRESSION [None]
  - IRRITABILITY [None]
  - THERAPEUTIC RESPONSE UNEXPECTED WITH DRUG SUBSTITUTION [None]
